FAERS Safety Report 18798258 (Version 1)
Quarter: 2021Q1

REPORT INFORMATION
  Report Type: Spontaneous
  Country: FR (occurrence: FR)
  Receive Date: 20210128
  Receipt Date: 20210128
  Transmission Date: 20210419
  Serious: Yes (Other)
  Sender: FDA-Public Use
  Company Number: FR-TEVA-2021-FR-1873492

PATIENT
  Age: 65 Year
  Sex: Male

DRUGS (2)
  1. AMLODIPINE [Suspect]
     Active Substance: AMLODIPINE BESYLATE
     Indication: HYPERTENSION
     Dosage: DAILY (IN THE EVENING)
     Route: 065
  2. VALSARTAN BIOGARAN 40 MG [Concomitant]

REACTIONS (6)
  - Arteritis [Unknown]
  - Peripheral swelling [Not Recovered/Not Resolved]
  - Induration [Unknown]
  - Fall [Unknown]
  - Memory impairment [Unknown]
  - Oedema peripheral [Not Recovered/Not Resolved]

NARRATIVE: CASE EVENT DATE: 202011
